FAERS Safety Report 16772050 (Version 1)
Quarter: 2019Q3

REPORT INFORMATION
  Report Type: Spontaneous
  Country: US (occurrence: US)
  Receive Date: 20190715
  Receipt Date: 20190715
  Transmission Date: 20191005
  Serious: Yes (Hospitalization)
  Sender: FDA-Public Use
  Company Number: None

PATIENT
  Age: 47 Year
  Sex: Male

DRUGS (1)
  1. COTELLIC [Suspect]
     Active Substance: COBIMETINIB
     Indication: NEOPLASM MALIGNANT
     Route: 048
     Dates: start: 20190607

REACTIONS (4)
  - Vomiting [None]
  - Hypoaesthesia [None]
  - Abdominal distension [None]
  - Mastication disorder [None]

NARRATIVE: CASE EVENT DATE: 20190714
